FAERS Safety Report 6200801-3 (Version None)
Quarter: 2009Q2

REPORT INFORMATION
  Report Type: 
  Country: None (occurrence: None)
  Receive Date: 20090522
  Receipt Date: 20080905
  Transmission Date: 20091009
  Serious: Yes (Other)
  Sender: FDA-Public Use
  Company Number: US-ALEXION-A200800161

PATIENT
  Sex: Male

DRUGS (10)
  1. SOLIRIS [Suspect]
     Indication: PAROXYSMAL NOCTURNAL HAEMOGLOBINURIA
     Dosage: 600 MG, SINGLE
     Route: 042
     Dates: start: 20080626, end: 20080626
  2. SOLIRIS [Suspect]
     Dosage: 600 MG, SINGLE
     Route: 042
     Dates: start: 20080703, end: 20080703
  3. SOLIRIS [Suspect]
     Dosage: 600 MG, SINGLE
     Route: 042
     Dates: start: 20080711, end: 20080711
  4. SOLIRIS [Suspect]
     Dosage: 600 MG, SINGLE
     Route: 042
     Dates: start: 20080718, end: 20080718
  5. SOLIRIS [Suspect]
     Dosage: 900 MG, SINGLE
     Route: 042
     Dates: start: 20080724, end: 20080724
  6. XANAX [Concomitant]
     Dosage: .5 MG, Q4H
     Route: 048
  7. PERCOCET [Concomitant]
     Dosage: 10 MG, PRN
     Route: 048
  8. EFFEXOR [Concomitant]
     Dosage: 75 MG, QD
     Route: 048
  9. ADVIL LIQUI-GELS [Concomitant]
     Indication: PREMEDICATION
     Dosage: 40 MG, SINGLE PRE-TREATMENT
     Route: 048
     Dates: start: 20080626, end: 20080724
  10. BENADRYL [Concomitant]
     Indication: PREMEDICATION
     Dosage: 25 MG, SINGLE PRE-TREATMENT
     Route: 042
     Dates: start: 20080626, end: 20080724

REACTIONS (3)
  - HAEMOLYSIS [None]
  - HEADACHE [None]
  - THROMBOCYTOPENIA [None]
